FAERS Safety Report 23998579 (Version 1)
Quarter: 2024Q2

REPORT INFORMATION
  Report Type: Spontaneous
  Country: US (occurrence: None)
  Receive Date: 20240620
  Receipt Date: 20240620
  Transmission Date: 20240716
  Serious: Yes (Hospitalization)
  Sender: FDA-Public Use
  Company Number: None

PATIENT
  Sex: Male

DRUGS (1)
  1. CAPECITABINE [Suspect]
     Active Substance: CAPECITABINE
     Indication: Anal neoplasm
     Dosage: FREQUENCY: TWICE A DAY MONDAY-FRIDAY?
     Route: 048
     Dates: start: 20240510

REACTIONS (3)
  - Hospitalisation [None]
  - Deep vein thrombosis [None]
  - Therapy interrupted [None]

NARRATIVE: CASE EVENT DATE: 20240615
